FAERS Safety Report 9158242 (Version 2)
Quarter: 2013Q2

REPORT INFORMATION
  Report Type: Report from Study
  Country: JP (occurrence: JP)
  Receive Date: 20130312
  Receipt Date: 20130409
  Transmission Date: 20140414
  Serious: Yes (Death)
  Sender: FDA-Public Use
  Company Number: JP-PFIZER INC-2013081225

PATIENT
  Age: 87 Year
  Sex: Male

DRUGS (2)
  1. AZITHROMYCIN [Suspect]
     Indication: PNEUMONIA
     Dosage: 500 MG, 1X/DAY
     Route: 042
     Dates: start: 20130104, end: 20130105
  2. MEROPENEM [Suspect]
     Indication: PNEUMONIA
     Dosage: 1 G, 2X/DAY
     Route: 042
     Dates: start: 20130104, end: 20130105

REACTIONS (1)
  - Pneumonia [Fatal]
